FAERS Safety Report 9817826 (Version 1)
Quarter: 2013Q4

REPORT INFORMATION
  Report Type: Spontaneous
  Country: US (occurrence: None)
  Receive Date: 20131223
  Receipt Date: 20131223
  Transmission Date: 20140711
  Serious: No
  Sender: FDA-Public Use
  Company Number: 220276

PATIENT
  Age: 53 Year
  Sex: Female

DRUGS (4)
  1. PICATO [Suspect]
     Indication: ACTINIC KERATOSIS
     Dosage: 1 IN 1 D
     Route: 061
     Dates: start: 20130122, end: 20130124
  2. BLOOD PRESSURE PILLS [Concomitant]
  3. CHOLESTEROL- AND TRIGLYCERIDE REDUCERS [Concomitant]
  4. METFORMIN [Concomitant]

REACTIONS (5)
  - Application site erythema [None]
  - Application site reaction [None]
  - Application site swelling [None]
  - Drug administered at inappropriate site [None]
  - Off label use [None]
